FAERS Safety Report 5225316-0 (Version None)
Quarter: 2007Q1

REPORT INFORMATION
  Report Type: 
  Country: None (occurrence: None)
  Receive Date: 20070131
  Receipt Date: 20070116
  Transmission Date: 20070707
  Serious: Yes (Hospitalization)
  Sender: FDA-Public Use
  Company Number: US-AMGEN-US201034

PATIENT
  Sex: Female
  Weight: 77.2 kg

DRUGS (11)
  1. ENBREL [Suspect]
     Indication: PSORIATIC ARTHROPATHY
     Route: 058
     Dates: start: 20000401
  2. ENBREL [Suspect]
     Indication: PSORIASIS
  3. SYNTHROID [Concomitant]
  4. DIOVAN HCT [Concomitant]
  5. FLOMAX [Concomitant]
  6. DETROL [Concomitant]
  7. PLAVIX [Concomitant]
  8. PREMPRO 14/14 [Concomitant]
  9. ACTONEL [Concomitant]
  10. TOPROL-XL [Concomitant]
  11. PREVACID [Concomitant]

REACTIONS (2)
  - HYPERPARATHYROIDISM PRIMARY [None]
  - HYPERPARATHYROIDISM SECONDARY [None]
